FAERS Safety Report 8829771 (Version 1)
Quarter: 2012Q4

REPORT INFORMATION
  Report Type: 
  Country: IT (occurrence: IT)
  Receive Date: 20121008
  Receipt Date: 20121008
  Transmission Date: 20130627
  Serious: Yes (Other)
  Sender: FDA-Public Use
  Company Number: IT-CELGENEUS-083-21880-12093387

PATIENT

DRUGS (1)
  1. REVLIMID [Suspect]
     Indication: MDS
     Dosage: 10 Milligram
     Route: 048

REACTIONS (3)
  - Haematotoxicity [Unknown]
  - Toxicity to various agents [Unknown]
  - Myelodysplastic syndrome [Unknown]
